FAERS Safety Report 24451212 (Version 1)
Quarter: 2024Q4

REPORT INFORMATION
  Report Type: Spontaneous
  Country: US (occurrence: US)
  Receive Date: 20241017
  Receipt Date: 20241017
  Transmission Date: 20250115
  Serious: No
  Sender: FRESENIUS KABI
  Company Number: US-FreseniusKabi-FK202415249

PATIENT

DRUGS (3)
  1. PROPOFOL [Suspect]
     Active Substance: PROPOFOL
     Indication: Product used for unknown indication
     Dosage: GTT (DROPS) VIA BD ALARIS PUMP INFUSION SET?FORM OF ADMINISTRATION: INFUSION
  2. REMIFENTANIL [Suspect]
     Active Substance: REMIFENTANIL
     Indication: Product used for unknown indication
     Dosage: GTT (DROPS) VIA BD ALARIS PUMP INFUSION SET?FORM OF ADMINISTRATION: INFUSION
  3. 0.9 % NS [Concomitant]
     Indication: Product used for unknown indication
     Dosage: INFUSING VIA GRAVITY ON LVENIX ADMINISTRATION SET.

REACTIONS (2)
  - Product administration interrupted [Unknown]
  - Sedation complication [Unknown]

NARRATIVE: CASE EVENT DATE: 20241003
